FAERS Safety Report 11521266 (Version 1)
Quarter: 2015Q3

REPORT INFORMATION
  Report Type: Spontaneous
  Country: US (occurrence: US)
  Receive Date: 20150918
  Receipt Date: 20150918
  Transmission Date: 20151125
  Serious: No
  Sender: FDA-Public Use
  Company Number: US-ROCHE-665851

PATIENT
  Age: 64 Year
  Sex: Female
  Weight: 103.4 kg

DRUGS (11)
  1. VITAMIN B12 [Concomitant]
     Active Substance: CYANOCOBALAMIN
     Dosage: DOSE: 1000 MG/ML, START DATE WAS REPORTED AS ^PRIOR TO TREATMENT^
     Route: 030
  2. PEGASYS [Suspect]
     Active Substance: PEGINTERFERON ALFA-2A
     Indication: HEPATITIS C
     Dosage: PRE-FILLED SYRINGE
     Route: 058
     Dates: start: 20091015, end: 20100909
  3. ZOLOFT [Concomitant]
     Active Substance: SERTRALINE HYDROCHLORIDE
     Indication: DEPRESSION
     Route: 048
  4. LACTULOSE. [Concomitant]
     Active Substance: LACTULOSE
     Indication: AMMONIA INCREASED
     Dosage: DOSE: 30 CC
     Route: 048
  5. ALLEGRA [Concomitant]
     Active Substance: FEXOFENADINE HYDROCHLORIDE
     Indication: RHINITIS ALLERGIC
     Dosage: FREQUENCY ONCE A DAY AS NECESSARY.
     Route: 048
  6. SPIRONOLACTONE. [Concomitant]
     Active Substance: SPIRONOLACTONE
     Dosage: START DATE WAS REPORTED AS ^PRIOR TO TREATMENT^, INDICATION REWPORTED AS ^HORMONE^.
     Route: 048
  7. ZYRTEC [Concomitant]
     Active Substance: CETIRIZINE HYDROCHLORIDE
     Indication: RHINITIS ALLERGIC
     Dosage: FREQUENCY: ONCE DAILY (QD) AS NECESSARY (PRN)
     Route: 048
     Dates: start: 200910, end: 200911
  8. VIVELLE-DOT [Concomitant]
     Active Substance: ESTRADIOL
     Dosage: START DATE WAS REPORTED AS ^PRIOR TO TREATMENT^
     Route: 065
  9. COPEGUS [Suspect]
     Active Substance: RIBAVIRIN
     Indication: HEPATITIS C
     Dosage: IN DIVIDED DOSES IN MORNING (AM) AND EVENING(PM)
     Route: 048
     Dates: start: 20091015, end: 20100909
  10. ATIVAN [Concomitant]
     Active Substance: LORAZEPAM
     Indication: ANXIETY
     Dosage: DOSE: .05, FREQUENCY ^BID-TID AS REQUIRED^
     Route: 048
  11. ATARAX [Concomitant]
     Active Substance: HYDROXYZINE\HYDROXYZINE HYDROCHLORIDE
     Indication: PRURITUS
     Dosage: FREQUENCY: ^FOUR TIMES A DAY (QID) AS NEEDED (PRN)^. THE DRUG WAS TAKEN ^OFF AND ON^.
     Route: 048

REACTIONS (15)
  - Asthenia [Not Recovered/Not Resolved]
  - Hyperhidrosis [Not Recovered/Not Resolved]
  - Nausea [Not Recovered/Not Resolved]
  - White blood cell count decreased [Recovered/Resolved]
  - Pruritus [Unknown]
  - Arthralgia [Unknown]
  - Visual impairment [Recovering/Resolving]
  - Fatigue [Not Recovered/Not Resolved]
  - Vision blurred [Unknown]
  - Bronchitis [Recovered/Resolved]
  - Rash papular [Recovering/Resolving]
  - Rash [Unknown]
  - Fatigue [Recovering/Resolving]
  - Chills [Not Recovered/Not Resolved]
  - Agitation [Not Recovered/Not Resolved]

NARRATIVE: CASE EVENT DATE: 20091019
